FAERS Safety Report 4347730-8 (Version None)
Quarter: 2004Q2

REPORT INFORMATION
  Report Type: 
  Country: None (occurrence: None)
  Receive Date: 20040422
  Receipt Date: 20040402
  Transmission Date: 20050107
  Serious: Yes (Other)
  Sender: FDA-Public Use
  Company Number: USA040464041

PATIENT
  Age: 6 Year
  Sex: Male

DRUGS (1)
  1. STRATTERA [Suspect]
     Dosage: 40 MG DAY
     Dates: start: 20040225

REACTIONS (2)
  - LOSS OF CONSCIOUSNESS [None]
  - PHARYNGITIS STREPTOCOCCAL [None]
